FAERS Safety Report 12840864 (Version 2)
Quarter: 2019Q1

REPORT INFORMATION
  Report Type: Spontaneous
  Country: US (occurrence: US)
  Receive Date: 20161012
  Receipt Date: 20190222
  Transmission Date: 20190417
  Serious: Yes (Other)
  Sender: FDA-Public Use
  Company Number: US-UCBSA-2016024440

PATIENT
  Age: 27 Year
  Sex: Female

DRUGS (2)
  1. KEPPRA XR [Suspect]
     Active Substance: LEVETIRACETAM
     Indication: EPILEPSY
     Dosage: 2000 MG IN MORNING AND 3000 MG IN NIGHT
     Route: 048
     Dates: start: 2009
  2. KEPPRA [Suspect]
     Active Substance: LEVETIRACETAM
     Indication: EPILEPSY
     Dosage: UNK
     Dates: start: 2005, end: 2009

REACTIONS (6)
  - Seizure [Unknown]
  - Malaise [Not Recovered/Not Resolved]
  - Overdose [Unknown]
  - Nasopharyngitis [Unknown]
  - Cholecystectomy [Not Recovered/Not Resolved]
  - Off label use [Unknown]

NARRATIVE: CASE EVENT DATE: 200510
